FAERS Safety Report 8990109 (Version 1)
Quarter: 2012Q4

REPORT INFORMATION
  Report Type: 
  Country: GB (occurrence: GB)
  Receive Date: 20121228
  Receipt Date: 20121228
  Transmission Date: 20130627
  Serious: Yes (Disabling, Other)
  Sender: FDA-Public Use
  Company Number: GB-TEVA-377047ISR

PATIENT
  Age: 52 Year
  Sex: Male
  Weight: 100 kg

DRUGS (4)
  1. CITALOPRAM [Suspect]
     Indication: DEPRESSION
     Dosage: Gradually reducing doses down to zero.
     Route: 048
     Dates: start: 20110406, end: 20110429
  2. MIRTAZAPINE [Suspect]
     Indication: DEPRESSION
     Route: 048
     Dates: start: 20110610, end: 20110610
  3. FLUOXETINE [Suspect]
     Indication: DEPRESSION
     Dosage: .5 Milligram Daily; reduced to 0.2mg or zero/day
     Route: 048
     Dates: start: 20110509, end: 20110527
  4. IBUPROFEN [Concomitant]
     Indication: HEADACHE

REACTIONS (9)
  - Serotonin syndrome [Recovered/Resolved]
  - Nausea [Recovered/Resolved]
  - Abdominal pain [Recovered/Resolved]
  - Movement disorder [Recovered/Resolved]
  - Locked-in syndrome [Recovered/Resolved]
  - Muscle twitching [Recovered/Resolved]
  - Muscle twitching [Recovered/Resolved]
  - Toxicity to various agents [Recovered/Resolved]
  - Hypersomnia [Recovered/Resolved]
